FAERS Safety Report 7689377-1 (Version None)
Quarter: 2011Q3

REPORT INFORMATION
  Report Type: 
  Country: None (occurrence: None)
  Receive Date: 20110811
  Receipt Date: 20110801
  Transmission Date: 20111222
  Serious: Yes (Death)
  Sender: FDA-Public Use
  Company Number: UTC-009178

PATIENT
  Age: 62 Year
  Sex: Female
  Weight: 64.1 kg

DRUGS (3)
  1. DIURETICS (DIURETICS) [Concomitant]
  2. TRACLEER [Concomitant]
  3. TYVASO [Suspect]
     Indication: COR PULMONALE CHRONIC
     Dosage: 18-54 MICROGRAMS (4 IN 1 D), INHALATION
     Route: 055
     Dates: start: 20110610

REACTIONS (1)
  - DEATH [None]
